FAERS Safety Report 6504255-9 (Version None)
Quarter: 2009Q4

REPORT INFORMATION
  Report Type: 
  Country: None (occurrence: None)
  Receive Date: 20091217
  Receipt Date: 20091016
  Transmission Date: 20100525
  Serious: No
  Sender: FDA-Public Use
  Company Number: US-ABBOTT-09P-163-0603356-00

PATIENT
  Sex: Female
  Weight: 90.8 kg

DRUGS (4)
  1. HYTRIN [Suspect]
     Indication: DRUG USE FOR UNKNOWN INDICATION
  2. HYDRALAZINE HCL [Suspect]
     Indication: DRUG USE FOR UNKNOWN INDICATION
     Dates: end: 20090801
  3. SIMVASTATIN [Suspect]
     Indication: BLOOD CHOLESTEROL INCREASED
     Route: 048
     Dates: start: 20090401
  4. COREG [Suspect]
     Indication: DRUG USE FOR UNKNOWN INDICATION
     Dates: end: 20090701

REACTIONS (1)
  - OEDEMA PERIPHERAL [None]
